FAERS Safety Report 19165302 (Version 2)
Quarter: 2021Q2

REPORT INFORMATION
  Report Type: Spontaneous
  Country: LT (occurrence: LT)
  Receive Date: 20210421
  Receipt Date: 20210428
  Transmission Date: 20210717
  Serious: Yes (Hospitalization, Congenital Anomaly)
  Sender: FDA-Public Use
  Company Number: NVSC2021LT087688

PATIENT
  Age: 0 Day
  Sex: Male

DRUGS (5)
  1. ACICLOVIR [Suspect]
     Active Substance: ACYCLOVIR
     Dosage: MATERNAL DOSE (800 MG, 5QD (1 TABLET 5 TIMES PER DAY)
     Route: 064
  2. L?THYROXINE [Suspect]
     Active Substance: LEVOTHYROXINE
     Indication: FOETAL EXPOSURE DURING PREGNANCY
     Dosage: MATERNAL DOSE (75 UG, QD)
     Route: 064
  3. PETHIDINUM [Suspect]
     Active Substance: MEPERIDINE
     Indication: FOETAL EXPOSURE DURING PREGNANCY
     Dosage: MATERNAL DOSE (100 MG, ONCE/SINGLE)
     Route: 064
  4. ACICLOVIR [Suspect]
     Active Substance: ACYCLOVIR
     Indication: FOETAL EXPOSURE DURING PREGNANCY
     Dosage: MATERNAL DOSE (750 MG, ONCE/SINGLE)
     Route: 064
  5. OXYTOCIN. [Suspect]
     Active Substance: OXYTOCIN
     Indication: FOETAL EXPOSURE DURING PREGNANCY
     Dosage: MATERNAL DOSE (IN SMALL DOSE SCHEME)
     Route: 064

REACTIONS (2)
  - Foetal exposure during pregnancy [Unknown]
  - Congenital varicella infection [Unknown]

NARRATIVE: CASE EVENT DATE: 20201110
